FAERS Safety Report 8806532 (Version 3)
Quarter: 2012Q4

REPORT INFORMATION
  Report Type: 
  Country: US (occurrence: US)
  Receive Date: 20120925
  Receipt Date: 20121108
  Transmission Date: 20130627
  Serious: Yes (Hospitalization)
  Sender: FDA-Public Use
  Company Number: US-BAYER-2012-097125

PATIENT
  Age: 48 Year
  Sex: Female
  Weight: 86.17 kg

DRUGS (14)
  1. YAZ [Suspect]
     Indication: CONTRACEPTION
     Dosage: UNK
     Dates: start: 20020101, end: 2011
  2. YAZ [Suspect]
     Indication: PREMENSTRUAL SYNDROME
  3. YAZ [Suspect]
     Indication: PREMENSTRUAL DYSPHORIC DISORDER
  4. YASMIN [Suspect]
     Indication: CONTRACEPTION
     Dosage: UNK
     Dates: start: 20020101, end: 2011
  5. YASMIN [Suspect]
     Indication: PREMENSTRUAL DYSPHORIC DISORDER
  6. YASMIN [Suspect]
     Indication: PREMENSTRUAL SYNDROME
  7. GIANVI [Suspect]
     Indication: CONTRACEPTION
     Dosage: UNK
     Dates: start: 2002, end: 201102
  8. GIANVI [Suspect]
     Indication: PREMENSTRUAL DYSPHORIC DISORDER
  9. GIANVI [Suspect]
     Indication: PREMENSTRUAL SYNDROME
  10. LORAZEPAM [Concomitant]
     Dosage: 1 mg, UNK
     Dates: start: 20110806
  11. NAPROXEN [Concomitant]
     Dosage: UNK
     Dates: start: 20110806
  12. OMEPRAZOLE [Concomitant]
     Dosage: 20 mg, UNK
     Dates: start: 20110806
  13. FLUTICASONE [Concomitant]
     Indication: MULTIPLE ALLERGIES
     Dosage: UNK
     Dates: start: 2010
  14. ANTIBIOTICS [Concomitant]
     Dosage: Off and on since 1999

REACTIONS (14)
  - Deep vein thrombosis [None]
  - Increased tendency to bruise [None]
  - Emotional distress [None]
  - Injury [None]
  - Pain in extremity [None]
  - General physical health deterioration [None]
  - Anxiety [None]
  - Pain [None]
  - Anhedonia [None]
  - Impaired healing [None]
  - Oedema peripheral [None]
  - Scar [None]
  - Skin discolouration [None]
  - Pain [None]
